FAERS Safety Report 5386657-X (Version None)
Quarter: 2007Q3

REPORT INFORMATION
  Report Type: 
  Country: None (occurrence: None)
  Receive Date: 20070713
  Receipt Date: 20070711
  Transmission Date: 20080115
  Serious: Yes (Life-Threatening, Hospitalization)
  Sender: FDA-Public Use
  Company Number: US-MERCK-0706USA00071

PATIENT
  Age: 76 Year
  Sex: Female
  Weight: 65 kg

DRUGS (12)
  1. VYTORIN [Suspect]
     Indication: DYSLIPIDAEMIA
     Route: 048
     Dates: start: 20051017, end: 20070525
  2. VYTORIN [Suspect]
     Indication: CAROTID ARTERY STENOSIS
     Route: 048
     Dates: start: 20051017, end: 20070525
  3. NORVASC [Concomitant]
     Indication: BLOOD CHOLESTEROL
     Route: 048
  4. NIACIN [Concomitant]
     Route: 065
  5. ELAVIL [Concomitant]
     Route: 065
  6. ASPIRIN [Concomitant]
     Route: 065
  7. CYANOCOBALAMIN AND FOLIC ACID AND PYRIDOXINE HYDROCHLORIDE [Concomitant]
     Route: 048
  8. ASCORBIC ACID [Concomitant]
     Route: 065
  9. LACTOBACILLUS ACIDOPHILUS [Concomitant]
     Route: 065
  10. CENTRUM SILVER [Concomitant]
     Route: 065
  11. INSULIN LISPRO [Concomitant]
     Route: 065
  12. CALCIUM (UNSPECIFIED) AND VITAMIN D (UNSPECIFIED) [Concomitant]
     Route: 065

REACTIONS (1)
  - MYASTHENIA GRAVIS [None]
